FAERS Safety Report 4504733-8 (Version None)
Quarter: 2004Q4

REPORT INFORMATION
  Report Type: 
  Country: None (occurrence: None)
  Receive Date: 20040927
  Receipt Date: 20040712
  Transmission Date: 20050328
  Serious: No
  Sender: FDA-Public Use
  Company Number: USA040772409

PATIENT
  Age: 11 Year
  Sex: Male
  Weight: 48 kg

DRUGS (1)
  1. STRATTERA [Suspect]
     Indication: ATTENTION DEFICIT/HYPERACTIVITY DISORDER
     Dosage: 80 MG IN THE EVENING

REACTIONS (3)
  - PRESCRIBED OVERDOSE [None]
  - SOMNOLENCE [None]
  - VOMITING [None]
